FAERS Safety Report 9268803 (Version 1)
Quarter: 2013Q2

REPORT INFORMATION
  Report Type: Report from Study
  Country: JP (occurrence: JP)
  Receive Date: 20130502
  Receipt Date: 20130502
  Transmission Date: 20140414
  Serious: No
  Sender: FDA-Public Use
  Company Number: JP-B.I. PHARMACEUTICALS,INC./RIDGEFIELD-2013-BI-12298NB

PATIENT
  Age: 71 Year
  Sex: Female
  Weight: 42.5 kg

DRUGS (4)
  1. TRAZENTA [Suspect]
     Indication: TYPE 2 DIABETES MELLITUS
     Dosage: 5 MG
     Route: 048
     Dates: start: 20130409, end: 20130423
  2. LOCHOL [Concomitant]
     Dosage: 20 MG
     Route: 048
     Dates: start: 2007
  3. HERBESSER R [Concomitant]
     Dosage: 100 MG
     Route: 048
     Dates: start: 2007
  4. BAYASPIRIN [Concomitant]
     Dosage: 100 MG
     Route: 048
     Dates: start: 2007

REACTIONS (2)
  - Drug eruption [Unknown]
  - Constipation [Unknown]
